FAERS Safety Report 9674495 (Version 2)
Quarter: 2013Q4

REPORT INFORMATION
  Report Type: Spontaneous
  Country: BR (occurrence: BR)
  Receive Date: 20131107
  Receipt Date: 20131107
  Transmission Date: 20140711
  Serious: Yes (Death)
  Sender: FDA-Public Use
  Company Number: BR-BRISTOL-MYERS SQUIBB COMPANY-19595404

PATIENT
  Sex: Male

DRUGS (1)
  1. HYDREA CAPS 500 MG [Suspect]
     Indication: NEOPLASM MALIGNANT
     Dosage: 13OC13-NASOGASTRIC-1CAPS/8HR
     Route: 048

REACTIONS (1)
  - Death [Fatal]
